FAERS Safety Report 8433155-2 (Version None)
Quarter: 2012Q2

REPORT INFORMATION
  Report Type: 
  Country: None (occurrence: None)
  Receive Date: 20120613
  Receipt Date: 20120607
  Transmission Date: 20120825
  Serious: Yes (Hospitalization)
  Sender: FDA-Public Use
  Company Number: US-GLAXOSMITHKLINE-A0804242A

PATIENT
  Age: 57 Year
  Sex: Male
  Weight: 127.3 kg

DRUGS (6)
  1. AVANDIA [Suspect]
     Indication: DIABETES MELLITUS
     Dosage: 4MG TWICE PER DAY
     Route: 048
     Dates: start: 20000929, end: 20070501
  2. PAXIL [Concomitant]
  3. FOSINOPRIL SODIUM [Concomitant]
  4. INSULIN [Concomitant]
  5. LIPITOR [Concomitant]
  6. ZETIA [Concomitant]

REACTIONS (2)
  - CARDIAC FAILURE CONGESTIVE [None]
  - CEREBROVASCULAR ACCIDENT [None]
